FAERS Safety Report 6772304-9 (Version None)
Quarter: 2010Q2

REPORT INFORMATION
  Report Type: 
  Country: None (occurrence: None)
  Receive Date: 20100616
  Receipt Date: 20100308
  Transmission Date: 20101027
  Serious: No
  Sender: FDA-Public Use
  Company Number: US-ASTRAZENECA-2010SE09897

PATIENT
  Age: 92 Year
  Sex: Female

DRUGS (1)
  1. PULMICORT RESPULES [Suspect]
     Indication: ASTHMA
     Route: 055

REACTIONS (3)
  - DRUG INEFFECTIVE [None]
  - RHINORRHOEA [None]
  - WHEEZING [None]
